FAERS Safety Report 22220421 (Version 1)
Quarter: 2023Q2

REPORT INFORMATION
  Report Type: Other
  Country: US (occurrence: US)
  Receive Date: 20230417
  Receipt Date: 20230417
  Transmission Date: 20230721
  Serious: Yes (Hospitalization, Other)
  Sender: FDA-Public Use
  Company Number: US-HLS-202300089

PATIENT
  Age: 43 Year
  Sex: Male

DRUGS (2)
  1. CLOZAPINE [Suspect]
     Active Substance: CLOZAPINE
     Indication: Psychotic disorder
     Dosage: 2.5 WEEKS OF TREATMENT
     Route: 065
  2. OLANZAPINE [Suspect]
     Active Substance: OLANZAPINE
     Indication: Psychotic disorder
     Route: 065

REACTIONS (5)
  - Myocarditis [Unknown]
  - Depression [Not Recovered/Not Resolved]
  - Off label use [Recovered/Resolved]
  - Paranoia [Recovering/Resolving]
  - Psychotic symptom [Recovered/Resolved]
